FAERS Safety Report 11528334 (Version 1)
Quarter: 2015Q3

REPORT INFORMATION
  Report Type: Spontaneous
  Country: BE (occurrence: BE)
  Receive Date: 20150921
  Receipt Date: 20150921
  Transmission Date: 20151125
  Serious: Yes (Other)
  Sender: FDA-Public Use
  Company Number: BE-CIPLA LTD.-2015BE07450

PATIENT

DRUGS (15)
  1. LAMIVUDINE. [Suspect]
     Active Substance: LAMIVUDINE
  2. ELVITEGRAVIR [Suspect]
     Active Substance: ELVITEGRAVIR
     Indication: HIV INFECTION
     Route: 065
  3. LOPINAVIR/RITONAVIR [Suspect]
     Active Substance: LOPINAVIR\RITONAVIR
     Indication: HIV INFECTION
     Route: 065
  4. ZIDOVUDINE. [Suspect]
     Active Substance: ZIDOVUDINE
     Indication: HIV INFECTION
     Route: 065
  5. ALLOPURINOL. [Suspect]
     Active Substance: ALLOPURINOL
     Dosage: 100 MG, QD
     Route: 065
  6. TENOFOVIR DISOPROXIL FUMARATE. [Suspect]
     Active Substance: TENOFOVIR DISOPROXIL FUMARATE
     Indication: HIV INFECTION
     Route: 065
  7. ABACAVIR. [Suspect]
     Active Substance: ABACAVIR
     Route: 065
  8. LISINOPRIL. [Suspect]
     Active Substance: LISINOPRIL
     Dosage: 5 MG, QD
     Route: 065
  9. RITONAVIR. [Suspect]
     Active Substance: RITONAVIR
     Route: 065
  10. EMTRICITABINE [Suspect]
     Active Substance: EMTRICITABINE
     Indication: HIV INFECTION
     Route: 065
  11. TRICOR [Suspect]
     Active Substance: FENOFIBRATE
     Dosage: 267 MG, QD
     Route: 065
  12. COBICISTAT [Suspect]
     Active Substance: COBICISTAT
     Indication: HIV INFECTION
     Route: 065
  13. ASPIRIN. [Suspect]
     Active Substance: ASPIRIN
     Dosage: 80 MG, QD
     Route: 065
  14. PRAVASTATIN [Suspect]
     Active Substance: PRAVASTATIN\PRAVASTATIN SODIUM
     Dosage: 40 MG, QD
     Route: 065
  15. DARUNAVIR [Suspect]
     Active Substance: DARUNAVIR

REACTIONS (11)
  - Decreased appetite [Unknown]
  - Gout [Unknown]
  - Gastrointestinal disorder [Unknown]
  - Hypertension [Unknown]
  - Renal impairment [None]
  - Pain [Unknown]
  - Chromaturia [None]
  - Rhabdomyolysis [Unknown]
  - Dyslipidaemia [Unknown]
  - Renal tubular necrosis [Unknown]
  - Nausea [Unknown]
